FAERS Safety Report 11434158 (Version 1)
Quarter: 2015Q3

REPORT INFORMATION
  Report Type: Report from Study
  Country: US (occurrence: US)
  Receive Date: 20150831
  Receipt Date: 20150831
  Transmission Date: 20151125
  Serious: Yes (Other)
  Sender: FDA-Public Use
  Company Number: US-BEH-2015053517

PATIENT
  Age: 21 Year
  Sex: Female

DRUGS (2)
  1. CYTOGAM [Suspect]
     Active Substance: HUMAN CYTOMEGALOVIRUS IMMUNE GLOBULIN
     Indication: CYTOMEGALOVIRUS INFECTION
     Dosage: TOTAL OF 5 INFUSIONS
     Route: 042
     Dates: start: 20150318, end: 20150715
  2. ALBURX [Suspect]
     Active Substance: ALBUMIN (HUMAN)
     Indication: CYTOMEGALOVIRUS INFECTION
     Route: 042
     Dates: start: 20150318, end: 20150715

REACTIONS (6)
  - Caesarean section [None]
  - Premature delivery [Recovered/Resolved]
  - Oligohydramnios [None]
  - Exposure during pregnancy [Recovered/Resolved]
  - Maternal exposure during pregnancy [None]
  - Prolonged labour [None]

NARRATIVE: CASE EVENT DATE: 20150801
